FAERS Safety Report 5844496-7 (Version None)
Quarter: 2008Q3

REPORT INFORMATION
  Report Type: 
  Country: None (occurrence: None)
  Receive Date: 20080811
  Receipt Date: 20080730
  Transmission Date: 20090109
  Serious: Yes (Hospitalization)
  Sender: FDA-Public Use
  Company Number: 2007JP005218

PATIENT
  Age: 8 Year
  Sex: Female
  Weight: 19.4 kg

DRUGS (18)
  1. PROGRAF [Suspect]
     Indication: RENAL TRANSPLANT
     Dosage: 4 MG, BID, ORAL, 2.5 MG, BID, ORAL, 2 MG, BID, ORAL, 1 MG, BID, ORAL, 0.5 MG, BID, ORAL
     Route: 048
     Dates: start: 20021010, end: 20030401
  2. PROGRAF [Suspect]
     Indication: RENAL TRANSPLANT
     Dosage: 4 MG, BID, ORAL, 2.5 MG, BID, ORAL, 2 MG, BID, ORAL, 1 MG, BID, ORAL, 0.5 MG, BID, ORAL
     Route: 048
     Dates: start: 20030401, end: 20040201
  3. PROGRAF [Suspect]
     Indication: RENAL TRANSPLANT
     Dosage: 4 MG, BID, ORAL, 2.5 MG, BID, ORAL, 2 MG, BID, ORAL, 1 MG, BID, ORAL, 0.5 MG, BID, ORAL
     Route: 048
     Dates: start: 20070201, end: 20070701
  4. PROGRAF [Suspect]
     Indication: RENAL TRANSPLANT
     Dosage: 4 MG, BID, ORAL, 2.5 MG, BID, ORAL, 2 MG, BID, ORAL, 1 MG, BID, ORAL, 0.5 MG, BID, ORAL
     Route: 048
     Dates: start: 20070701, end: 20071101
  5. PROGRAF [Suspect]
     Indication: RENAL TRANSPLANT
     Dosage: 4 MG, BID, ORAL, 2.5 MG, BID, ORAL, 2 MG, BID, ORAL, 1 MG, BID, ORAL, 0.5 MG, BID, ORAL
     Route: 048
     Dates: start: 20071101
  6. PROGRAF [Suspect]
     Indication: RENAL TRANSPLANT
     Dosage: 0.68 MG, CONTINUOUS, IV NOS
     Route: 042
     Dates: start: 20021010, end: 20021012
  7. CELLCEPT [Suspect]
     Indication: RENAL TRANSPLANT
     Dosage: 175 MG, BID, ORAL, 225 MG, BID, ORAL, 250 MG, BID, ORAL, 175, MG,BID, ORAL, 125 MG, BID, ORAL, 62.5
     Route: 048
     Dates: start: 20021010, end: 20050801
  8. CELLCEPT [Suspect]
     Indication: RENAL TRANSPLANT
     Dosage: 175 MG, BID, ORAL, 225 MG, BID, ORAL, 250 MG, BID, ORAL, 175, MG,BID, ORAL, 125 MG, BID, ORAL, 62.5
     Route: 048
     Dates: start: 20050801, end: 20060201
  9. CELLCEPT [Suspect]
     Indication: RENAL TRANSPLANT
     Dosage: 175 MG, BID, ORAL, 225 MG, BID, ORAL, 250 MG, BID, ORAL, 175, MG,BID, ORAL, 125 MG, BID, ORAL, 62.5
     Route: 048
     Dates: start: 20060201, end: 20070901
  10. CELLCEPT [Suspect]
     Indication: RENAL TRANSPLANT
     Dosage: 175 MG, BID, ORAL, 225 MG, BID, ORAL, 250 MG, BID, ORAL, 175, MG,BID, ORAL, 125 MG, BID, ORAL, 62.5
     Route: 048
     Dates: start: 20070901, end: 20071001
  11. CELLCEPT [Suspect]
     Indication: RENAL TRANSPLANT
     Dosage: 175 MG, BID, ORAL, 225 MG, BID, ORAL, 250 MG, BID, ORAL, 175, MG,BID, ORAL, 125 MG, BID, ORAL, 62.5
     Route: 048
     Dates: start: 20071001, end: 20071101
  12. CELLCEPT [Suspect]
     Indication: RENAL TRANSPLANT
     Dosage: 175 MG, BID, ORAL, 225 MG, BID, ORAL, 250 MG, BID, ORAL, 175, MG,BID, ORAL, 125 MG, BID, ORAL, 62.5
     Route: 048
     Dates: start: 20071101
  13. MEDROL [Suspect]
     Indication: RENAL TRANSPLANT
     Dosage: 10 MG, UNKNOWN/D, ORAL, 4 MG, QOD, ORAL, 2 MG, QOD, ORAL, 12 MG, UID/QD; ORAL, 4 MG, QOD, ORAL, 2 MG
     Route: 048
     Dates: start: 20021010, end: 20021201
  14. MEDROL [Suspect]
     Indication: RENAL TRANSPLANT
     Dosage: 10 MG, UNKNOWN/D, ORAL, 4 MG, QOD, ORAL, 2 MG, QOD, ORAL, 12 MG, UID/QD; ORAL, 4 MG, QOD, ORAL, 2 MG
     Route: 048
     Dates: start: 20021201, end: 20031001
  15. MEDROL [Suspect]
     Indication: RENAL TRANSPLANT
     Dosage: 10 MG, UNKNOWN/D, ORAL, 4 MG, QOD, ORAL, 2 MG, QOD, ORAL, 12 MG, UID/QD; ORAL, 4 MG, QOD, ORAL, 2 MG
     Route: 048
     Dates: start: 20031001, end: 20041001
  16. MEDROL [Suspect]
     Indication: RENAL TRANSPLANT
     Dosage: 10 MG, UNKNOWN/D, ORAL, 4 MG, QOD, ORAL, 2 MG, QOD, ORAL, 12 MG, UID/QD; ORAL, 4 MG, QOD, ORAL, 2 MG
     Route: 048
     Dates: start: 20041001, end: 20041201
  17. MEDROL [Suspect]
     Indication: RENAL TRANSPLANT
     Dosage: 10 MG, UNKNOWN/D, ORAL, 4 MG, QOD, ORAL, 2 MG, QOD, ORAL, 12 MG, UID/QD; ORAL, 4 MG, QOD, ORAL, 2 MG
     Route: 048
     Dates: start: 20041201, end: 20050801
  18. MEDROL [Suspect]
     Indication: RENAL TRANSPLANT
     Dosage: 10 MG, UNKNOWN/D, ORAL, 4 MG, QOD, ORAL, 2 MG, QOD, ORAL, 12 MG, UID/QD; ORAL, 4 MG, QOD, ORAL, 2 MG
     Route: 048
     Dates: start: 20050801

REACTIONS (8)
  - ATELECTASIS [None]
  - BRONCHIAL OBSTRUCTION [None]
  - BRONCHOPNEUMONIA [None]
  - EPSTEIN-BARR VIRUS INFECTION [None]
  - INFLAMMATION [None]
  - LEIOMYOSARCOMA [None]
  - METASTASES TO LUNG [None]
  - PNEUMOCOCCAL INFECTION [None]
